FAERS Safety Report 16919819 (Version 1)
Quarter: 2019Q4

REPORT INFORMATION
  Report Type: Spontaneous
  Country: US (occurrence: US)
  Receive Date: 20191015
  Receipt Date: 20191015
  Transmission Date: 20200122
  Serious: Yes (Other)
  Sender: FDA-Public Use
  Company Number: None

PATIENT
  Age: 49 Year
  Sex: Male
  Weight: 94.5 kg

DRUGS (1)
  1. AUSTEDO [Suspect]
     Active Substance: DEUTETRABENAZINE
     Indication: TOURETTE^S DISORDER
     Dates: start: 20190814, end: 20191012

REACTIONS (8)
  - Abnormal dreams [None]
  - Arthralgia [None]
  - Insomnia [None]
  - Depression [None]
  - Feeling abnormal [None]
  - Visual impairment [None]
  - Tic [None]
  - Myalgia [None]
